FAERS Safety Report 4334505-9 (Version None)
Quarter: 2004Q2

REPORT INFORMATION
  Report Type: 
  Country: None (occurrence: None)
  Receive Date: 20040407
  Receipt Date: 20040311
  Transmission Date: 20050107
  Serious: Yes (Hospitalization)
  Sender: FDA-Public Use
  Company Number: FR-GLAXOSMITHKLINE-B0326251A

PATIENT
  Age: 61 Year
  Sex: Male

DRUGS (11)
  1. FORTUM [Suspect]
     Indication: PYELONEPHRITIS ACUTE
     Dates: start: 20031031
  2. ERYTHROCINE [Suspect]
     Dosage: 100MG THREE TIMES PER DAY
     Route: 048
     Dates: start: 20031031, end: 20031209
  3. DANTRIUM [Suspect]
     Dosage: 50MG THREE TIMES PER DAY
     Route: 048
     Dates: start: 20030925, end: 20031209
  4. VANCOMYCIN [Suspect]
     Indication: PYELONEPHRITIS ACUTE
     Dates: start: 20031031
  5. DEBRIDAT [Concomitant]
     Indication: ABDOMINAL PAIN
     Dosage: 100MG THREE TIMES PER DAY
     Route: 030
     Dates: start: 20031110, end: 20031229
  6. LIORESAL [Concomitant]
     Dosage: 30MG THREE TIMES PER DAY
     Route: 048
     Dates: start: 20030903
  7. CLAFORAN [Concomitant]
     Indication: HYPERTHERMIA
     Dosage: 1G THREE TIMES PER DAY
     Dates: start: 20030523
  8. GENTALLINE [Concomitant]
     Indication: HYPERTHERMIA
     Dosage: 80MG TWICE PER DAY
     Dates: start: 20030523, end: 20030525
  9. PRIMPERAN INJ [Concomitant]
     Dosage: 3UNIT PER DAY
     Dates: start: 20031023, end: 20031229
  10. NOCTRAN [Concomitant]
     Dosage: .5UNIT PER DAY
     Route: 048
     Dates: end: 20031209
  11. ATARAX [Concomitant]
     Dosage: 50MG PER DAY
     Route: 048

REACTIONS (10)
  - ABDOMINAL PAIN [None]
  - BLOOD CULTURE POSITIVE [None]
  - DUODENITIS [None]
  - FLATULENCE [None]
  - GASTRITIS [None]
  - GENERAL PHYSICAL HEALTH DETERIORATION [None]
  - ILL-DEFINED DISORDER [None]
  - MICROCYTIC ANAEMIA [None]
  - PANCYTOPENIA [None]
  - PYELONEPHRITIS ACUTE [None]
